FAERS Safety Report 18679445 (Version 4)
Quarter: 2021Q1

REPORT INFORMATION
  Report Type: Report from Study
  Country: US (occurrence: US)
  Receive Date: 20201229
  Receipt Date: 20210301
  Transmission Date: 20210419
  Serious: No
  Sender: FDA-Public Use
  Company Number: NVSC2020US340398

PATIENT
  Sex: Female

DRUGS (1)
  1. COSENTYX [Suspect]
     Active Substance: SECUKINUMAB
     Indication: PSORIASIS
     Dosage: 300 MG, QMO
     Route: 058
     Dates: start: 202008

REACTIONS (4)
  - Therapeutic product effect incomplete [Recovering/Resolving]
  - Peripheral swelling [Recovering/Resolving]
  - Product storage error [Unknown]
  - Inappropriate schedule of product administration [Not Recovered/Not Resolved]
